FAERS Safety Report 4358130-9 (Version None)
Quarter: 2004Q2

REPORT INFORMATION
  Report Type: 
  Country: None (occurrence: None)
  Receive Date: 20040511
  Receipt Date: 20040430
  Transmission Date: 20050107
  Serious: Yes (Death)
  Sender: FDA-Public Use
  Company Number: JP-JNJFOC-20040500001

PATIENT
  Age: 68 Year
  Sex: Male

DRUGS (5)
  1. DUROTEP (FENTANYL) PTCH [Suspect]
     Indication: CANCER PAIN
     Dosage: SEE IMAGE
     Route: 062
     Dates: start: 20040305, end: 20040307
  2. DUROTEP (FENTANYL) PTCH [Suspect]
     Indication: CANCER PAIN
     Dosage: SEE IMAGE
     Route: 062
     Dates: start: 20040308, end: 20040319
  3. MORPHINE [Concomitant]
  4. VITAMIN B COMPLEX (B-KOMPLEX ^LECIVA^) [Interacting]
  5. PHYSIOSOL NO3 (FIGIOSOL 3 GO) [Concomitant]

REACTIONS (5)
  - BONE CANCER METASTATIC [None]
  - CONSTIPATION [None]
  - EUPHORIC MOOD [None]
  - MALIGNANT NEOPLASM PROGRESSION [None]
  - SOMNOLENCE [None]
